FAERS Safety Report 26082064 (Version 1)
Quarter: 2025Q4

REPORT INFORMATION
  Report Type: Spontaneous
  Country: US (occurrence: None)
  Receive Date: 20251121
  Receipt Date: 20251121
  Transmission Date: 20260117
  Serious: Yes (Other)
  Sender: FDA-CTU
  Company Number: None

PATIENT
  Age: 61 Year
  Sex: Male
  Weight: 121.5 kg

DRUGS (4)
  1. VTAMA [Suspect]
     Active Substance: TAPINAROF
     Dosage: OTHER QUANTITY : 1 SPREAD THINLY SKIN;?
     Route: 061
     Dates: start: 20251006, end: 20251110
  2. ATORVASTATIN [Concomitant]
     Active Substance: ATORVASTATIN
  3. METFORMIN [Concomitant]
     Active Substance: METFORMIN HYDROCHLORIDE
  4. VALSTAR [Concomitant]
     Active Substance: VALRUBICIN

REACTIONS (1)
  - Drug hypersensitivity [None]

NARRATIVE: CASE EVENT DATE: 20251112
